FAERS Safety Report 21984652 (Version 1)
Quarter: 2023Q1

REPORT INFORMATION
  Report Type: Spontaneous
  Country: CN (occurrence: CN)
  Receive Date: 20230213
  Receipt Date: 20230213
  Transmission Date: 20230417
  Serious: Yes (Hospitalization)
  Sender: FDA-Public Use
  Company Number: CN-MYLANLABS-2023M1013537

PATIENT
  Age: 76 Year
  Sex: Female
  Weight: 61 kg

DRUGS (2)
  1. LYRICA [Suspect]
     Active Substance: PREGABALIN
     Indication: Pain
     Dosage: 75 MILLIGRAM, QD
     Route: 048
     Dates: start: 20230117, end: 20230125
  2. LYRICA [Suspect]
     Active Substance: PREGABALIN
     Indication: Herpes zoster

REACTIONS (1)
  - Jaundice [Recovering/Resolving]

NARRATIVE: CASE EVENT DATE: 20230123
